FAERS Safety Report 7132738-X (Version None)
Quarter: 2010Q4

REPORT INFORMATION
  Report Type: 
  Country: None (occurrence: None)
  Receive Date: 20101202
  Receipt Date: 20101126
  Transmission Date: 20110411
  Serious: Yes (Life-Threatening)
  Sender: FDA-Public Use
  Company Number: FR-PFIZER INC-2008037098

PATIENT
  Age: 9 Month
  Sex: Female
  Weight: 8 kg

DRUGS (5)
  1. ZITHROMAX [Suspect]
     Indication: BRONCHITIS
     Route: 048
     Dates: start: 20071226, end: 20071227
  2. IBUPROFEN (ADVIL) [Suspect]
     Dosage: EVERY DAY
     Route: 048
     Dates: start: 20071218, end: 20071227
  3. ACETAMINOPHEN [Suspect]
     Dosage: EVERY DAY
     Route: 048
     Dates: start: 20071218, end: 20071227
  4. AMOXICILLIN TRIHYDRATE [Concomitant]
     Dates: start: 20071218, end: 20071227
  5. CEFPODOXIME PROXETIL [Concomitant]
     Dates: start: 20071216, end: 20071218

REACTIONS (3)
  - CONDITION AGGRAVATED [None]
  - MENINGITIS [None]
  - SEPSIS [None]
